FAERS Safety Report 14184057 (Version 2)
Quarter: 2017Q4

REPORT INFORMATION
  Report Type: Spontaneous
  Country: FI (occurrence: FI)
  Receive Date: 20171113
  Receipt Date: 20171117
  Transmission Date: 20180321
  Serious: Yes (Life-Threatening)
  Sender: FDA-Public Use
  Company Number: PHHY2017FI165980

PATIENT
  Age: 17 Year
  Sex: Male

DRUGS (9)
  1. SANDIMMUN [Suspect]
     Active Substance: CYCLOSPORINE
     Indication: STEM CELL TRANSPLANT
     Dosage: 12 MG, UNK
     Route: 042
     Dates: start: 20171103, end: 20171103
  2. CEFTRIAXONE FRESENIUS [Concomitant]
     Indication: FEBRILE NEUTROPENIA
     Dosage: 2 G, QD
     Route: 042
     Dates: start: 20171103
  3. ZOVIRAX [Concomitant]
     Active Substance: ACYCLOVIR
     Indication: HERPES VIRUS INFECTION
     Dosage: 750 MG, TID
     Route: 042
     Dates: start: 20171030
  4. TOBRAMYCIN B BRAUN [Concomitant]
     Indication: FEBRILE NEUTROPENIA
     Dosage: 40 MG, QD
     Route: 042
     Dates: start: 20171103
  5. ZOFRAN ZYDIS LINGUAL [Concomitant]
     Indication: PRODUCT USED FOR UNKNOWN INDICATION
     Dosage: 8 MG, BID
     Route: 048
     Dates: start: 20171028
  6. CALCICHEW D3 STRONG SITRUUNA [Concomitant]
     Indication: PRODUCT USED FOR UNKNOWN INDICATION
     Dosage: 1 DF, BID
     Route: 048
     Dates: start: 20171028
  7. ADURSAL [Concomitant]
     Indication: LIVER DISORDER
     Dosage: 600 MG, BID
     Route: 048
     Dates: start: 20171027
  8. SANDIMMUN [Suspect]
     Active Substance: CYCLOSPORINE
     Indication: GRAFT VERSUS HOST DISEASE
  9. KALEORID [Concomitant]
     Active Substance: POTASSIUM CHLORIDE
     Indication: PRODUCT USED FOR UNKNOWN INDICATION
     Dosage: 1 G, TID
     Route: 048
     Dates: start: 20171028

REACTIONS (9)
  - Pruritus [Recovered/Resolved]
  - Hypersensitivity [Recovered/Resolved]
  - Hypotension [Recovered/Resolved]
  - Tachycardia [Recovered/Resolved]
  - Oxygen saturation decreased [Recovered/Resolved]
  - Dyspnoea [Recovered/Resolved]
  - Pharyngitis [Recovered/Resolved]
  - Swollen tongue [Recovered/Resolved]
  - Chest pain [Unknown]

NARRATIVE: CASE EVENT DATE: 20171103
